FAERS Safety Report 7770496-6 (Version None)
Quarter: 2011Q3

REPORT INFORMATION
  Report Type: 
  Country: None (occurrence: None)
  Receive Date: 20110922
  Receipt Date: 20110221
  Transmission Date: 20111222
  Serious: No
  Sender: FDA-Public Use
  Company Number: US-ASTRAZENECA-2011SE03947

PATIENT
  Age: 58 Year
  Sex: Male
  Weight: 91.6 kg

DRUGS (6)
  1. FIORICET [Concomitant]
  2. PLAVIX [Concomitant]
     Dosage: 75
  3. SEROQUEL [Suspect]
     Indication: SLEEP DISORDER
     Dosage: 50 MG, AT NIGHT 3 TO 4 TIMES PER WEEK
     Route: 048
     Dates: start: 20080101, end: 20110118
  4. LAMICTAL [Concomitant]
     Dosage: 200
  5. ASPIRIN [Concomitant]
  6. SEROQUEL [Suspect]
     Indication: INSOMNIA
     Dosage: 50 MG, AT NIGHT 3 TO 4 TIMES PER WEEK
     Route: 048
     Dates: start: 20080101, end: 20110118

REACTIONS (6)
  - HAEMOGLOBIN INCREASED [None]
  - GLYCOSYLATED HAEMOGLOBIN INCREASED [None]
  - DIABETES MELLITUS [None]
  - LIPIDS INCREASED [None]
  - BLOOD GLUCOSE INCREASED [None]
  - LIVER FUNCTION TEST ABNORMAL [None]
